FAERS Safety Report 4765788-9 (Version None)
Quarter: 2005Q3

REPORT INFORMATION
  Report Type: 
  Country: None (occurrence: None)
  Receive Date: 20050908
  Receipt Date: 20050908
  Transmission Date: 20060218
  Serious: Yes (Other)
  Sender: FDA-Public Use
  Company Number: None

PATIENT
  Sex: Male
  Weight: 88.905 kg

DRUGS (4)
  1. TERAZOSIN 5 MG APOTEX [Suspect]
     Indication: BENIGN PROSTATIC HYPERPLASIA
     Dosage: 1 CAPSULE(5 MG) PO AT BEDTIME
     Route: 048
  2. VYTORIN [Concomitant]
  3. ENALAPRIL [Concomitant]
  4. TOPROL-XL [Concomitant]

REACTIONS (3)
  - PHARMACEUTICAL PRODUCT COMPLAINT [None]
  - POLLAKIURIA [None]
  - URINARY INCONTINENCE [None]
